FAERS Safety Report 18480699 (Version 1)
Quarter: 2020Q4

REPORT INFORMATION
  Report Type: Report from Study
  Country: KR (occurrence: KR)
  Receive Date: 20201109
  Receipt Date: 20201109
  Transmission Date: 20210114
  Serious: Yes (Hospitalization)
  Sender: FDA-Public Use
  Company Number: KR-MYLANLABS-2020M1093092

PATIENT
  Age: 5 Year
  Sex: Female
  Weight: 58.1 kg

DRUGS (2)
  1. ETOPOSIDE. [Suspect]
     Active Substance: ETOPOSIDE
     Indication: OSTEOSARCOMA
     Dosage: 100 MILLIGRAM/SQ. METER, CYCLE (ON DAY 1-3 OF EVERY 21 DAYS CYCLE)
     Route: 042
     Dates: start: 20200805
  2. IFOSFAMIDE. [Suspect]
     Active Substance: IFOSFAMIDE
     Indication: OSTEOSARCOMA
     Dosage: 3000 MILLIGRAM/SQ. METER, CYCLE(ON DAY 1-3 OF EVERY 21 DAYS CYCLE)
     Route: 042
     Dates: start: 20200805

REACTIONS (7)
  - Neutrophil count decreased [Unknown]
  - C-reactive protein increased [Unknown]
  - Paronychia [Unknown]
  - Swelling [Unknown]
  - Tenderness [Unknown]
  - Ingrowing nail [Unknown]
  - Pyrexia [Recovered/Resolved]

NARRATIVE: CASE EVENT DATE: 20200723
